FAERS Safety Report 9602292 (Version 3)
Quarter: 2013Q4

REPORT INFORMATION
  Report Type: Spontaneous
  Country: DE (occurrence: None)
  Receive Date: 20131003
  Receipt Date: 20131104
  Transmission Date: 20140711
  Serious: Yes (Disabling, Other)
  Sender: FDA-Public Use
  Company Number: 1309-1231

PATIENT
  Age: 87 Year
  Sex: Female

DRUGS (1)
  1. EYLEA [Suspect]
     Indication: AGE-RELATED MACULAR DEGENERATION
     Dates: end: 20130731

REACTIONS (9)
  - Arthralgia [None]
  - General physical health deterioration [None]
  - Polymyalgia rheumatica [None]
  - Weight decreased [None]
  - Polyneuropathy [None]
  - Abdominal pain [None]
  - Disease recurrence [None]
  - Decreased appetite [None]
  - Depression [None]
